FAERS Safety Report 9219129 (Version 2)
Quarter: 2013Q2

REPORT INFORMATION
  Report Type: Report from Study
  Country: US (occurrence: US)
  Receive Date: 20130409
  Receipt Date: 20130506
  Transmission Date: 20140414
  Serious: Yes (Hospitalization, Other)
  Sender: FDA-Public Use
  Company Number: PHEH2013US007901

PATIENT
  Age: 40 Year
  Sex: Male
  Weight: 69 kg

DRUGS (4)
  1. TOBI [Suspect]
     Indication: CYSTIC FIBROSIS
     Dosage: 300 MG, BID
     Dates: start: 20061025, end: 20070501
  2. TOBI [Suspect]
     Dosage: 300 MG, QD (2 WEEKS ON, 2 WEEKS OFF)
     Dates: start: 20070523
  3. TOBI [Suspect]
     Dosage: 300 MG, DAILY 2 WEEKS ON, 2 WEEKS OFF
     Dates: start: 20130214
  4. TOBI [Suspect]
     Dosage: UNK UKN, QD
     Dates: start: 20130318

REACTIONS (15)
  - Influenza like illness [Unknown]
  - Pneumonia staphylococcal [Recovering/Resolving]
  - Chills [Unknown]
  - Feeling abnormal [Unknown]
  - Chest discomfort [Unknown]
  - Pain [Unknown]
  - Cough [Unknown]
  - Pyrexia [Unknown]
  - Iron deficiency anaemia [Unknown]
  - Osteoporosis [Recovered/Resolved]
  - Ischaemia [Unknown]
  - Bronchitis [Recovered/Resolved]
  - Oesophageal hypomotility [Unknown]
  - Gastrooesophageal reflux disease [Unknown]
  - Chronic sinusitis [Unknown]
